FAERS Safety Report 7591983-X (Version None)
Quarter: 2011Q3

REPORT INFORMATION
  Report Type: 
  Country: None (occurrence: None)
  Receive Date: 20110701
  Receipt Date: 20110701
  Transmission Date: 20111222
  Serious: Yes (Other)
  Sender: FDA-Public Use
  Company Number: None

PATIENT
  Sex: Male
  Weight: 35.3806 kg

DRUGS (1)
  1. METHYLIN [Suspect]
     Indication: ATTENTION DEFICIT/HYPERACTIVITY DISORDER
     Dosage: MYTHYLN ER 36 MG DAILY PO
     Route: 048
     Dates: start: 20110603

REACTIONS (4)
  - AFFECT LABILITY [None]
  - PRODUCT SUBSTITUTION ISSUE [None]
  - EDUCATIONAL PROBLEM [None]
  - ANGER [None]
